FAERS Safety Report 9422565 (Version 1)
Quarter: 2013Q3

REPORT INFORMATION
  Report Type: Spontaneous
  Country: US (occurrence: None)
  Receive Date: 20130725
  Receipt Date: 20130725
  Transmission Date: 20140515
  Serious: Yes (Hospitalization)
  Sender: FDA-Public Use
  Company Number: None

PATIENT
  Age: 56 Year
  Sex: Male

DRUGS (2)
  1. AMOXICILLIN/CLAVULANATE (AUGMENTIN) [Suspect]
     Indication: SINUSITIS
     Dates: start: 20120216, end: 20120301
  2. ZITHROMYCIN (Z-PAK) [Concomitant]

REACTIONS (6)
  - Dyspepsia [None]
  - Chromaturia [None]
  - Fatigue [None]
  - Alanine aminotransferase increased [None]
  - Blood bilirubin increased [None]
  - Drug ineffective [None]
